FAERS Safety Report 6375660-9 (Version None)
Quarter: 2009Q3

REPORT INFORMATION
  Report Type: 
  Country: None (occurrence: None)
  Receive Date: 20090918
  Receipt Date: 20090918
  Transmission Date: 20100115
  Serious: Yes (Life-Threatening, Hospitalization)
  Sender: FDA-Public Use
  Company Number: None

PATIENT
  Age: 60 Year
  Sex: Male
  Weight: 92.9874 kg

DRUGS (1)
  1. PROTAMINE IV [Suspect]
     Indication: HEPARIN NEUTRALISATION THERAPY
     Dosage: ONE DOSE
     Dates: start: 20090915, end: 20090915

REACTIONS (1)
  - DRUG HYPERSENSITIVITY [None]
